FAERS Safety Report 7091842-5 (Version None)
Quarter: 2010Q4

REPORT INFORMATION
  Report Type: 
  Country: None (occurrence: None)
  Receive Date: 20101109
  Receipt Date: 20101027
  Transmission Date: 20110411
  Serious: Yes (Hospitalization)
  Sender: FDA-Public Use
  Company Number: AU-ELI_LILLY_AND_COMPANY-AU201009003435

PATIENT
  Sex: Female

DRUGS (2)
  1. ZYPREXA [Suspect]
     Dosage: 10 MG, UNKNOWN
     Route: 065
     Dates: end: 20100801
  2. ZYPREXA [Suspect]
     Dosage: 12.5 MG, UNK
     Dates: start: 20100801, end: 20100909

REACTIONS (6)
  - FEBRILE NEUTROPENIA [None]
  - HAEMATOCRIT DECREASED [None]
  - HAEMOGLOBIN DECREASED [None]
  - LEUKOPENIA [None]
  - PLATELET COUNT INCREASED [None]
  - RED BLOOD CELL SEDIMENTATION RATE INCREASED [None]
